FAERS Safety Report 8548288-X (Version None)
Quarter: 2012Q3

REPORT INFORMATION
  Report Type: 
  Country: None (occurrence: None)
  Receive Date: 20120717
  Receipt Date: 20120709
  Transmission Date: 20120928
  Serious: Yes (Hospitalization, Disabling)
  Sender: FDA-Public Use
  Company Number: 2012NA000019

PATIENT
  Age: 52 Year
  Sex: Male

DRUGS (8)
  1. LIPITOR [Concomitant]
  2. LISINOPRIL [Concomitant]
  3. CAMBIA [Suspect]
     Indication: MIGRAINE
     Dosage: 50 MG;1X;PO; 50 MG; 1X; PO
     Route: 048
     Dates: start: 20120114, end: 20120114
  4. CAMBIA [Suspect]
     Indication: MIGRAINE
     Dosage: 50 MG;1X;PO; 50 MG; 1X; PO
     Route: 048
     Dates: start: 20120112, end: 20120112
  5. PLAVIIX [Concomitant]
  6. OXYCONTIN [Concomitant]
  7. MORPHINE SULFATE [Concomitant]
  8. XANAX [Concomitant]

REACTIONS (10)
  - MIGRAINE [None]
  - TUNNEL VISION [None]
  - FALL [None]
  - BLINDNESS [None]
  - CONDITION AGGRAVATED [None]
  - CEREBROVASCULAR ACCIDENT [None]
  - VISION BLURRED [None]
  - VISUAL FIELD DEFECT [None]
  - PHOTOPSIA [None]
  - FOOT FRACTURE [None]
